FAERS Safety Report 13717436 (Version 1)
Quarter: 2017Q3

REPORT INFORMATION
  Report Type: Spontaneous
  Country: None (occurrence: US)
  Receive Date: 20170703
  Receipt Date: 20170703
  Transmission Date: 20171127
  Serious: No
  Sender: FDA-Public Use
  Company Number: None

PATIENT
  Sex: Male

DRUGS (1)
  1. NEXAVAR [Suspect]
     Active Substance: SORAFENIB
     Indication: LIVER TRANSPLANT
     Route: 048
     Dates: start: 20170613

REACTIONS (3)
  - Stomatitis [None]
  - Therapy cessation [None]
  - Diarrhoea [None]
